FAERS Safety Report 8576108-6 (Version None)
Quarter: 2012Q2

REPORT INFORMATION
  Report Type: 
  Country: None (occurrence: None)
  Receive Date: 20120423
  Receipt Date: 20100921
  Transmission Date: 20120825
  Serious: Yes (Hospitalization)
  Sender: FDA-Public Use
  Company Number: PHHY2010US62868

PATIENT
  Age: 21 Year
  Sex: Female
  Weight: 59.1 kg

DRUGS (2)
  1. PHENYTOIN [Concomitant]
  2. EXJADE [Suspect]
     Indication: SICKLE CELL ANAEMIA
     Dosage: 1000 MG, DAILY, ORAL
     Route: 048
     Dates: start: 20100618

REACTIONS (1)
  - SICKLE CELL ANAEMIA WITH CRISIS [None]
